FAERS Safety Report 21896499 (Version 1)
Quarter: 2023Q1

REPORT INFORMATION
  Report Type: Spontaneous
  Country: US (occurrence: None)
  Receive Date: 20230120
  Receipt Date: 20230120
  Transmission Date: 20230418
  Serious: Yes (Hospitalization)
  Sender: FDA-Public Use
  Company Number: None

PATIENT
  Age: 76 Year
  Sex: Male
  Weight: 101.15 kg

DRUGS (18)
  1. LENALIDOMIDE [Suspect]
     Active Substance: LENALIDOMIDE
     Indication: Plasma cell myeloma
     Dosage: OTHER FREQUENCY : 3W, 1W OFF;?
     Route: 048
  2. ASPIRIN [Concomitant]
     Active Substance: ASPIRIN
  3. COREG [Concomitant]
     Active Substance: CARVEDILOL
  4. FREESTYLE LITE [Concomitant]
  5. INSULIN NOS [Concomitant]
     Active Substance: INSULIN NOS
  6. LANTUS [Concomitant]
     Active Substance: INSULIN GLARGINE
  7. LEVAQUIN [Concomitant]
     Active Substance: LEVOFLOXACIN
  8. LIPITOR [Concomitant]
     Active Substance: ATORVASTATIN CALCIUM
  9. VITAMINS [Concomitant]
     Active Substance: VITAMINS
  10. NITROSTAT [Concomitant]
     Active Substance: NITROGLYCERIN
  11. NORCO [Concomitant]
     Active Substance: ACETAMINOPHEN\HYDROCODONE BITARTRATE
  12. NOVOLOG [Concomitant]
     Active Substance: INSULIN ASPART
  13. OLANZAPINE [Concomitant]
     Active Substance: OLANZAPINE
  14. PEN NEEDLE [Concomitant]
  15. PLAVIX [Concomitant]
     Active Substance: CLOPIDOGREL BISULFATE
  16. PROCHLORPERAZINE [Concomitant]
     Active Substance: PROCHLORPERAZINE
  17. VALACYCLOVIR [Concomitant]
     Active Substance: VALACYCLOVIR HYDROCHLORIDE
  18. ZOFRAN [Concomitant]
     Active Substance: ONDANSETRON HYDROCHLORIDE

REACTIONS (2)
  - Dizziness postural [None]
  - Fall [None]
